FAERS Safety Report 7472167-2 (Version None)
Quarter: 2011Q2

REPORT INFORMATION
  Report Type: 
  Country: None (occurrence: None)
  Receive Date: 20110511
  Receipt Date: 20110211
  Transmission Date: 20111010
  Serious: No
  Sender: FDA-Public Use
  Company Number: A0913159A

PATIENT
  Age: 42 Year
  Sex: Female

DRUGS (8)
  1. XELODA [Concomitant]
  2. VITAMIN B-12 [Concomitant]
  3. TYKERB [Suspect]
     Indication: BREAST CANCER
     Dosage: 2TAB TWICE PER DAY
     Route: 048
     Dates: start: 20110207
  4. COMPAZINE [Concomitant]
  5. MULTI-VITAMIN [Concomitant]
  6. MORPHINE [Concomitant]
  7. OXAZEPAM [Concomitant]
  8. VITAMIN D [Concomitant]

REACTIONS (3)
  - LIP BLISTER [None]
  - DYSPEPSIA [None]
  - THERMAL BURN [None]
